FAERS Safety Report 6668361-0 (Version None)
Quarter: 2010Q2

REPORT INFORMATION
  Report Type: 
  Country: None (occurrence: None)
  Receive Date: 20100401
  Receipt Date: 20100319
  Transmission Date: 20101027
  Serious: Yes (Hospitalization)
  Sender: FDA-Public Use
  Company Number: 009112

PATIENT
  Sex: Female

DRUGS (5)
  1. KEPPRA [Suspect]
     Indication: MENINGIOMA
     Dosage: 500 MG ORAL
     Route: 048
     Dates: start: 20090426, end: 20091101
  2. MORPHINE SULFATE [Concomitant]
  3. DURAGESIC-100 [Concomitant]
  4. ACTONEL [Concomitant]
  5. HYDROCORTISONE [Concomitant]

REACTIONS (4)
  - CHOLELITHIASIS [None]
  - HEPATIC STEATOSIS [None]
  - HEPATITIS [None]
  - HYPOALBUMINAEMIA [None]
